FAERS Safety Report 5457234-7 (Version None)
Quarter: 2007Q3

REPORT INFORMATION
  Report Type: 
  Country: None (occurrence: None)
  Receive Date: 20070918
  Receipt Date: 20070305
  Transmission Date: 20080115
  Serious: Yes (Hospitalization)
  Sender: FDA-Public Use
  Company Number: US-ASTRAZENECA-2007UW01428

PATIENT
  Age: 6581 Day
  Sex: Male
  Weight: 67.3 kg

DRUGS (3)
  1. SEROQUEL [Suspect]
     Indication: BIPOLAR I DISORDER
     Dosage: STARTER PACK
     Route: 048
     Dates: start: 20070111, end: 20070112
  2. SEROQUEL [Suspect]
     Route: 048
  3. MARIJUANA [Concomitant]

REACTIONS (2)
  - BUNDLE BRANCH BLOCK RIGHT [None]
  - TACHYCARDIA [None]
